FAERS Safety Report 20867348 (Version 1)
Quarter: 2022Q2

REPORT INFORMATION
  Report Type: Report from Study
  Country: JP (occurrence: JP)
  Receive Date: 20220524
  Receipt Date: 20220524
  Transmission Date: 20220721
  Serious: Yes (Hospitalization)
  Sender: FDA-Public Use
  Company Number: JP-JNJFOC-20220141078

PATIENT
  Age: 71 Year
  Sex: Male
  Weight: 75 kg

DRUGS (63)
  1. GUSELKUMAB [Suspect]
     Active Substance: GUSELKUMAB
     Indication: Colitis ulcerative
     Dosage: 400 MG OR 200 MG
     Route: 058
     Dates: start: 20210513
  2. GUSELKUMAB [Suspect]
     Active Substance: GUSELKUMAB
     Route: 058
     Dates: start: 20210805
  3. GUSELKUMAB [Suspect]
     Active Substance: GUSELKUMAB
     Dosage: 100 OR 200 MG
     Route: 058
     Dates: start: 20211028
  4. PREDNISOLONE [Concomitant]
     Active Substance: PREDNISOLONE
     Route: 048
     Dates: start: 20210205, end: 20211125
  5. PREDNISOLONE [Concomitant]
     Active Substance: PREDNISOLONE
     Route: 048
     Dates: start: 20211126, end: 20211223
  6. PREDNISOLONE [Concomitant]
     Active Substance: PREDNISOLONE
     Route: 048
     Dates: start: 20211224
  7. MESALAMINE [Concomitant]
     Active Substance: MESALAMINE
     Route: 048
     Dates: start: 202002
  8. MERCAPTOPURINE [Concomitant]
     Active Substance: MERCAPTOPURINE
     Route: 048
     Dates: start: 20201112
  9. ESOMEPRAZOLE MAGNESIUM [Concomitant]
     Active Substance: ESOMEPRAZOLE MAGNESIUM
     Indication: Gastritis
     Route: 048
  10. BEZAFIBRATE [Concomitant]
     Active Substance: BEZAFIBRATE
     Indication: Hyperlipidaemia
     Route: 048
  11. URSODIOL [Concomitant]
     Active Substance: URSODIOL
     Indication: Liver disorder
     Route: 048
  12. CLOSTRIDIUM BUTYRICUM SPORES STRAIN M-55 [Concomitant]
     Active Substance: CLOSTRIDIUM BUTYRICUM SPORES STRAIN M-55
     Indication: Colitis ulcerative
     Route: 048
     Dates: start: 20200819
  13. BIOFERMIN [BACILLUS SUBTILIS;LACTOMIN] [Concomitant]
     Indication: Colitis ulcerative
     Route: 048
     Dates: start: 20200819
  14. ALENDRONATE SODIUM [Concomitant]
     Active Substance: ALENDRONATE SODIUM
     Indication: Osteoporosis
     Route: 048
     Dates: start: 20200819
  15. DIPHENE [Concomitant]
     Indication: Pneumocystis jirovecii pneumonia
     Route: 048
     Dates: start: 20200818
  16. FERRIC SODIUM CITRATE [Concomitant]
     Active Substance: FERRIC SODIUM CITRATE
     Indication: Anaemia
     Route: 048
     Dates: start: 20210513, end: 20210624
  17. FERRIC SODIUM CITRATE [Concomitant]
     Active Substance: FERRIC SODIUM CITRATE
     Route: 048
     Dates: start: 20210708, end: 20210804
  18. FERRIC SODIUM CITRATE [Concomitant]
     Active Substance: FERRIC SODIUM CITRATE
     Route: 048
     Dates: start: 20210902, end: 20210930
  19. INSULIN LISPRO [Concomitant]
     Active Substance: INSULIN LISPRO
     Indication: Diabetes mellitus
     Dosage: 9 UNITS
     Dates: start: 20201112, end: 20211125
  20. INSULIN LISPRO [Concomitant]
     Active Substance: INSULIN LISPRO
     Dosage: 8 UNITS
     Dates: start: 20200912
  21. INSULIN LISPRO [Concomitant]
     Active Substance: INSULIN LISPRO
     Dosage: 6 UNITS
     Route: 058
     Dates: start: 20200924, end: 20211223
  22. INSULIN LISPRO [Concomitant]
     Active Substance: INSULIN LISPRO
     Dosage: 3 UNITS
     Route: 058
     Dates: start: 20200924
  23. INSULIN LISPRO [Concomitant]
     Active Substance: INSULIN LISPRO
     Dosage: 8 UNITS
     Route: 058
     Dates: start: 20200924, end: 20211125
  24. INSULIN LISPRO [Concomitant]
     Active Substance: INSULIN LISPRO
     Dosage: 6 UNITS
     Route: 058
     Dates: start: 20201126, end: 20211223
  25. INSULIN LISPRO [Concomitant]
     Active Substance: INSULIN LISPRO
     Dosage: 4 UNITS
     Route: 058
     Dates: start: 20201224, end: 20211223
  26. LIDOCAINE [Concomitant]
     Active Substance: LIDOCAINE
     Indication: Endoscopy
     Dates: start: 20210506, end: 20210506
  27. LIDOCAINE [Concomitant]
     Active Substance: LIDOCAINE
     Dates: start: 20210805, end: 20210805
  28. LIDOCAINE [Concomitant]
     Active Substance: LIDOCAINE
     Dates: start: 20211028, end: 20211028
  29. SUPLATAST TOSILATE [Concomitant]
     Active Substance: SUPLATAST TOSILATE
     Indication: Rhinitis allergic
     Route: 048
  30. FLUTICASONE FUROATE [Concomitant]
     Active Substance: FLUTICASONE FUROATE
     Indication: Rhinitis allergic
     Dosage: 2 PUFF
     Route: 045
  31. KETOPROFEN [Concomitant]
     Active Substance: KETOPROFEN
     Indication: Musculoskeletal stiffness
     Route: 062
  32. SODIUM HYALURONATE [Concomitant]
     Active Substance: HYALURONATE SODIUM
     Indication: Glaucoma
     Route: 031
     Dates: start: 20201014
  33. ESAXERENONE [Concomitant]
     Active Substance: ESAXERENONE
     Indication: Hypertension
     Route: 048
     Dates: start: 20210709
  34. AMLODIPINE BESYLATE [Concomitant]
     Active Substance: AMLODIPINE BESYLATE
     Indication: Hypertension
     Route: 048
     Dates: start: 20210805
  35. AMLODIPINE BESYLATE [Concomitant]
     Active Substance: AMLODIPINE BESYLATE
     Route: 048
     Dates: start: 20210513, end: 20210804
  36. CANDESARTAN CILEXETIL [Concomitant]
     Active Substance: CANDESARTAN CILEXETIL
     Indication: Hypertension
     Route: 048
     Dates: start: 20210512
  37. DOXAZOSIN MESYLATE [Concomitant]
     Active Substance: DOXAZOSIN MESYLATE
     Indication: Hypertension
     Route: 048
     Dates: start: 20210512
  38. AZILSARTAN KAMEDOXOMIL [Concomitant]
     Active Substance: AZILSARTAN KAMEDOXOMIL
     Indication: Hypertension
     Route: 048
     Dates: start: 20210610
  39. AZILSARTAN KAMEDOXOMIL [Concomitant]
     Active Substance: AZILSARTAN KAMEDOXOMIL
     Route: 048
     Dates: start: 20210513, end: 20210609
  40. PREGABALIN [Concomitant]
     Active Substance: PREGABALIN
     Indication: Musculoskeletal stiffness
     Route: 048
     Dates: start: 20211031
  41. PILSICAINIDE HYDROCHLORIDE [Concomitant]
     Active Substance: PILSICAINIDE HYDROCHLORIDE
     Indication: Atrial fibrillation
     Route: 048
     Dates: start: 20210610, end: 20210901
  42. VERAPAMIL HYDROCHLORIDE [Concomitant]
     Active Substance: VERAPAMIL HYDROCHLORIDE
     Indication: Atrial fibrillation
     Route: 048
     Dates: start: 20210902, end: 20211124
  43. FLECAINIDE ACETATE [Concomitant]
     Active Substance: FLECAINIDE ACETATE
     Indication: Atrial fibrillation
     Route: 048
     Dates: start: 20211126, end: 20220118
  44. SODIUM PERTECHNETATE 99MTC [Concomitant]
     Indication: Scan myocardial perfusion
     Dosage: 740
     Route: 042
     Dates: start: 20210531, end: 20210531
  45. TECHNETIUM TC 99M TETROFOSMIN [Concomitant]
     Indication: Scan myocardial perfusion
     Route: 042
     Dates: start: 20210531, end: 20210531
  46. ADENOSINE [Concomitant]
     Active Substance: ADENOSINE
     Indication: Scan myocardial perfusion
     Route: 042
     Dates: start: 20210531, end: 20210531
  47. LIDOCAINE HYDROCHLORIDE [Concomitant]
     Active Substance: LIDOCAINE HYDROCHLORIDE
     Indication: Endoscopy upper gastrointestinal tract
     Route: 048
     Dates: start: 20211223, end: 20211223
  48. BALGIN ANTIFOAMING [Concomitant]
     Indication: Endoscopy upper gastrointestinal tract
     Route: 048
     Dates: start: 20211223, end: 20211223
  49. LANDIOLOL HYDROCHLORIDE [Concomitant]
     Active Substance: LANDIOLOL HYDROCHLORIDE
     Indication: Scan with contrast
     Route: 042
     Dates: start: 20220118, end: 20220118
  50. PRIVINA [NAPHAZOLINE] [Concomitant]
     Indication: Endoscopy upper gastrointestinal tract
     Dosage: 4 PUFF
     Route: 045
     Dates: start: 20211223, end: 20211223
  51. IOMEPROL [Concomitant]
     Active Substance: IOMEPROL
     Indication: Scan with contrast
     Route: 042
     Dates: start: 20220118, end: 20220118
  52. NITROGLYCERIN [Concomitant]
     Active Substance: NITROGLYCERIN
     Indication: Echocardiogram
     Route: 060
     Dates: start: 20220118, end: 20220118
  53. MIDAZOLAM [Concomitant]
     Active Substance: MIDAZOLAM
     Indication: Echocardiogram
     Route: 042
     Dates: start: 20220118, end: 20220118
  54. MIDAZOLAM [Concomitant]
     Active Substance: MIDAZOLAM
     Indication: Cardiac ablation
     Route: 042
     Dates: start: 20220119, end: 20220119
  55. PENTAZOCINE [Concomitant]
     Active Substance: PENTAZOCINE
     Indication: Cardiac ablation
     Route: 042
     Dates: start: 20220119, end: 20220119
  56. METOCLOPRAMIDE HYDROCHLORIDE [Concomitant]
     Active Substance: METOCLOPRAMIDE HYDROCHLORIDE
     Indication: Cardiac ablation
     Route: 042
     Dates: start: 20220119, end: 20220119
  57. HYDROXYZINE HYDROCHLORIDE [Concomitant]
     Active Substance: HYDROXYZINE HYDROCHLORIDE
     Indication: Cardiac ablation
     Route: 042
     Dates: start: 20220119, end: 20220119
  58. FENTANYL CITRATE [Concomitant]
     Active Substance: FENTANYL CITRATE
     Indication: Cardiac ablation
     Route: 042
     Dates: start: 20220119, end: 20220119
  59. DEXMEDETOMIDINE HYDROCHLORIDE [Concomitant]
     Active Substance: DEXMEDETOMIDINE HYDROCHLORIDE
     Indication: Cardiac ablation
     Dosage: 2
     Route: 042
     Dates: start: 20220119, end: 20220119
  60. DIATRIZOIC ACID [Concomitant]
     Active Substance: DIATRIZOIC ACID
     Indication: Scan with contrast
     Route: 042
     Dates: start: 20220119, end: 20220119
  61. HEPARIN SODIUM [Concomitant]
     Active Substance: HEPARIN SODIUM
     Indication: Cardiac ablation
     Route: 042
     Dates: start: 20220119, end: 20220119
  62. ACETAMINOPHEN [Concomitant]
     Active Substance: ACETAMINOPHEN
     Indication: Cardiac ablation
     Route: 048
     Dates: start: 20220119
  63. DABIGATRAN ETEXILATE MESYLATE [Concomitant]
     Active Substance: DABIGATRAN ETEXILATE MESYLATE
     Indication: Atrial fibrillation
     Route: 048
     Dates: start: 20220118, end: 20220120

REACTIONS (1)
  - Atrial fibrillation [Recovered/Resolved]

NARRATIVE: CASE EVENT DATE: 20210610
